FAERS Safety Report 4721329-3 (Version None)
Quarter: 2005Q3

REPORT INFORMATION
  Report Type: 
  Country: None (occurrence: None)
  Receive Date: 20050721
  Receipt Date: 20040625
  Transmission Date: 20060218
  Serious: No
  Sender: FDA-Public Use
  Company Number: US-BRISTOL-MYERS SQUIBB COMPANY-12626032

PATIENT
  Age: 77 Year
  Sex: Male
  Weight: 84 kg

DRUGS (5)
  1. COUMADIN [Suspect]
     Indication: ATRIAL FIBRILLATION
     Dosage: PRIOR DOSE=2.5 MG ALTERN. W/ 5MG/D; APPROX. 1 1/2 MNTH AGO DOSE INCR=6MG X 6/D=36 + 7.5 X 1/D=43.5
     Route: 048
     Dates: start: 20040301
  2. PLAVIX [Suspect]
     Indication: STENT PLACEMENT
     Route: 048
     Dates: start: 20030601
  3. TENORMIN [Concomitant]
     Dosage: TAKEN FOR YEARS
  4. VASOTEC RPD [Concomitant]
     Dosage: TAKEN FOR YEARS
  5. FLOMAX [Concomitant]
     Dosage: TAKEN DAILY FOR YEARS

REACTIONS (1)
  - VITREOUS FLOATERS [None]
